FAERS Safety Report 8480352-6 (Version None)
Quarter: 2012Q3

REPORT INFORMATION
  Report Type: 
  Country: None (occurrence: None)
  Receive Date: 20120701
  Receipt Date: 20120529
  Transmission Date: 20120928
  Serious: Yes (Hospitalization)
  Sender: FDA-Public Use
  Company Number: ES-ELI_LILLY_AND_COMPANY-ES201206008610

PATIENT
  Sex: Male

DRUGS (3)
  1. OLANZAPINE [Suspect]
     Dosage: 450 MG PER MONTH
  2. OLANZAPINE [Suspect]
     Route: 048
  3. OLANZAPINE [Suspect]
     Dosage: 450 MG Q 15 DAYS

REACTIONS (4)
  - ABDOMINAL PAIN UPPER [None]
  - HOSPITALISATION [None]
  - OFF LABEL USE [None]
  - WEIGHT INCREASED [None]
